FAERS Safety Report 16310054 (Version 21)
Quarter: 2020Q1

REPORT INFORMATION
  Report Type: Report from Study
  Country: AU (occurrence: AU)
  Receive Date: 20190514
  Receipt Date: 20200303
  Transmission Date: 20200409
  Serious: Yes (Death, Hospitalization)
  Sender: FDA-Public Use
  Company Number: AU-EISAI MEDICAL RESEARCH-EC-2019-056270

PATIENT
  Age: 69 Year
  Sex: Female

DRUGS (12)
  1. LENVATINIB [Suspect]
     Active Substance: LENVATINIB
     Indication: HEPATOBILIARY CANCER
     Route: 048
     Dates: start: 20190417, end: 20190418
  2. PEMBROLIZUMAB. [Suspect]
     Active Substance: PEMBROLIZUMAB
     Indication: HEPATOBILIARY CANCER
     Route: 041
     Dates: start: 20190417, end: 20190417
  3. VITAMINS [Concomitant]
     Active Substance: VITAMINS
     Dates: start: 201812
  4. NEXIUM [Concomitant]
     Active Substance: ESOMEPRAZOLE MAGNESIUM
     Dates: start: 201801
  5. THIAMINE. [Concomitant]
     Active Substance: THIAMINE
     Dates: start: 201811
  6. LENVATINIB [Suspect]
     Active Substance: LENVATINIB
     Route: 048
     Dates: start: 20190420, end: 20190507
  7. ACETAMINOPHEN. [Concomitant]
     Active Substance: ACETAMINOPHEN
     Dates: start: 20190419, end: 20190419
  8. VITAMIN D [Concomitant]
     Active Substance: VITAMIN D NOS
     Dates: start: 201812
  9. MEGA CALCIUM [Concomitant]
     Dates: start: 201812
  10. MAGNESIUM [Concomitant]
     Active Substance: MAGNESIUM
     Dates: start: 201811, end: 20190507
  11. METOCLOPRAMIDE. [Concomitant]
     Active Substance: METOCLOPRAMIDE
     Dates: start: 20190419, end: 20190419
  12. CREON [Concomitant]
     Active Substance: PANCRELIPASE AMYLASE\PANCRELIPASE LIPASE\PANCRELIPASE PROTEASE
     Dates: start: 20181101

REACTIONS (3)
  - Diarrhoea [Recovered/Resolved]
  - Hypersensitivity myocarditis [Recovered/Resolved]
  - Rectal haemorrhage [Recovered/Resolved]

NARRATIVE: CASE EVENT DATE: 20190502
